FAERS Safety Report 10683859 (Version 3)
Quarter: 2015Q2

REPORT INFORMATION
  Report Type: Spontaneous
  Country: JP (occurrence: JP)
  Receive Date: 20141230
  Receipt Date: 20150506
  Transmission Date: 20150821
  Serious: Yes (Disabling, Other)
  Sender: FDA-Public Use
  Company Number: JP-BRISTOL-MYERS SQUIBB COMPANY-BMS-2014-003517

PATIENT
  Age: 83 Year
  Sex: Male
  Weight: 56 kg

DRUGS (12)
  1. IRINOTECAN [Suspect]
     Active Substance: IRINOTECAN
     Indication: RECTAL CANCER METASTATIC
     Dosage: 180 MG, UNK
     Route: 041
     Dates: start: 20140901
  2. DEXAMETHASONE. [Concomitant]
     Active Substance: DEXAMETHASONE
     Indication: PRODUCT USED FOR UNKNOWN INDICATION
     Route: 041
  3. ALACEPRIL [Concomitant]
     Active Substance: ALACEPRIL
     Indication: HYPERTENSION
     Dosage: UNK
     Route: 048
     Dates: start: 20140901
  4. ERBITUX [Suspect]
     Active Substance: CETUXIMAB
     Dosage: 380 MG, UNK
     Route: 041
     Dates: end: 20141125
  5. CILOSTAZOL. [Concomitant]
     Active Substance: CILOSTAZOL
     Indication: ARTERIAL OCCLUSIVE DISEASE
     Dosage: 50 MG, TID
     Route: 048
     Dates: start: 20140901
  6. NIFEDIPINE. [Concomitant]
     Active Substance: NIFEDIPINE
     Indication: HYPERTENSION
     Dosage: 20 MG, QD
     Route: 048
     Dates: start: 20140901
  7. ERBITUX [Suspect]
     Active Substance: CETUXIMAB
     Indication: RECTAL CANCER METASTATIC
     Dosage: 250 MG/M2, QWK
     Route: 041
     Dates: start: 20140901, end: 20140901
  8. FLUOROURACIL. [Suspect]
     Active Substance: FLUOROURACIL
     Indication: RECTAL CANCER METASTATIC
     Dosage: 3000 MG, UNK
     Route: 040
     Dates: start: 20140901
  9. FLUOROURACIL. [Suspect]
     Active Substance: FLUOROURACIL
     Dosage: UNK
     Route: 041
     Dates: start: 20140901
  10. IRINOTECAN [Suspect]
     Active Substance: IRINOTECAN
     Dosage: 140 UNK, UNK
     Route: 041
  11. CALCIUM FOLINATE [Concomitant]
     Active Substance: LEUCOVORIN CALCIUM
     Indication: COLON CANCER
     Dosage: UNK
     Route: 041
     Dates: start: 20140901
  12. OXALIPLATIN. [Concomitant]
     Active Substance: OXALIPLATIN
     Indication: COLON CANCER
     Dosage: UNK
     Route: 065

REACTIONS (5)
  - Rash [Unknown]
  - Diarrhoea [Recovering/Resolving]
  - Subcutaneous abscess [Recovering/Resolving]
  - Impaired healing [Recovering/Resolving]
  - Cellulitis [Recovering/Resolving]

NARRATIVE: CASE EVENT DATE: 20140907
